FAERS Safety Report 7555868-7 (Version None)
Quarter: 2011Q2

REPORT INFORMATION
  Report Type: 
  Country: None (occurrence: None)
  Receive Date: 20110618
  Receipt Date: 20110120
  Transmission Date: 20111010
  Serious: Yes (Hospitalization)
  Sender: FDA-Public Use
  Company Number: US-BAYER-201038343NA

PATIENT
  Age: 42 Year
  Sex: Female
  Weight: 102.4 kg

DRUGS (14)
  1. YAZ [Suspect]
     Indication: ACNE
     Dosage: UNK
     Dates: start: 20070101, end: 20070101
  2. ATENOLOL [Concomitant]
  3. NEXIUM [Concomitant]
     Indication: GASTROOESOPHAGEAL REFLUX DISEASE
  4. MIDRIN [Concomitant]
     Indication: MIGRAINE
  5. TRIAMTERENE AND HYDROCHLOROTHIAZIDE [Concomitant]
     Indication: DIURETIC THERAPY
     Dosage: UNK
     Dates: start: 20070101
  6. ZOLPIDEM [Concomitant]
     Dosage: UNK
     Dates: start: 20070101
  7. YASMIN [Suspect]
     Indication: ACNE
     Dosage: UNK
     Dates: start: 20070101, end: 20070101
  8. DROSPIRENONE AND ETHINYL ESTRADIOL [Suspect]
     Indication: ACNE
  9. ASCORBIC ACID [Concomitant]
  10. MAXZIDE [Concomitant]
  11. LEVAQUIN [Concomitant]
  12. ALBUTEROL SULFATE AUTOHALER [Concomitant]
     Indication: ASTHMA
  13. ADVAIR DISKUS 100/50 [Concomitant]
     Indication: ASTHMA
  14. HYDROCODONE BITARTRATE AND ACETAMINOPHEN [Concomitant]
     Dosage: UNK
     Dates: start: 20070101

REACTIONS (3)
  - THROMBOSIS [None]
  - INJURY [None]
  - DEEP VEIN THROMBOSIS [None]
